FAERS Safety Report 6136674-7 (Version None)
Quarter: 2009Q1

REPORT INFORMATION
  Report Type: 
  Country: None (occurrence: None)
  Receive Date: 20090330
  Receipt Date: 20090325
  Transmission Date: 20090719
  Serious: Yes (Hospitalization)
  Sender: FDA-Public Use
  Company Number: FR-BRISTOL-MYERS SQUIBB COMPANY-14561732

PATIENT
  Age: 56 Year
  Sex: Male

DRUGS (9)
  1. AMANTADINE HCL [Suspect]
     Dates: start: 20080901, end: 20090304
  2. METFORMIN HCL [Suspect]
     Indication: TYPE 2 DIABETES MELLITUS
     Dates: end: 20090304
  3. IMOVANE [Suspect]
     Indication: INSOMNIA
     Dates: start: 20080901, end: 20090304
  4. SPIRONOLACTONE [Suspect]
     Dosage: DOSE REDUCED TO 50MG/D
  5. LASIX [Concomitant]
     Dosage: LASILIX SPECIAL 500MG  1/4 TABLET/D
     Dates: start: 20090101
  6. AVLOCARDYL [Concomitant]
  7. DIFFU-K [Concomitant]
  8. PERINDOPRIL ERBUMINE [Concomitant]
  9. INIPOMP [Concomitant]

REACTIONS (1)
  - CONFUSIONAL STATE [None]
